FAERS Safety Report 5443164-3 (Version None)
Quarter: 2007Q3

REPORT INFORMATION
  Report Type: 
  Country: None (occurrence: None)
  Receive Date: 20070730
  Receipt Date: 20061208
  Transmission Date: 20080115
  Serious: Yes (Other)
  Sender: FDA-Public Use
  Company Number: 233686

PATIENT
  Age: 24 Year
  Sex: Female
  Weight: 68 kg

DRUGS (1)
  1. RITUXAN [Suspect]
     Indication: RHEUMATOID ARTHRITIS
     Dates: start: 20060706

REACTIONS (1)
  - PHARYNGITIS [None]
